FAERS Safety Report 5308591-3 (Version None)
Quarter: 2007Q2

REPORT INFORMATION
  Report Type: 
  Country: None (occurrence: None)
  Receive Date: 20070426
  Receipt Date: 20070419
  Transmission Date: 20071010
  Serious: Yes (Hospitalization)
  Sender: FDA-Public Use
  Company Number: FR-AVENTIS-200710422FR

PATIENT
  Age: 79 Year
  Sex: Female

DRUGS (6)
  1. CLAFORAN [Suspect]
     Route: 042
     Dates: start: 20070105
  2. OMNIPAQUE 140 [Suspect]
     Route: 013
     Dates: start: 20070103, end: 20070103
  3. AXEPIM [Suspect]
     Route: 042
     Dates: start: 20070103, end: 20070105
  4. VANCOMYCIN [Suspect]
     Route: 042
     Dates: start: 20070103, end: 20070108
  5. INIPOMP                            /01263201/ [Suspect]
     Route: 048
     Dates: start: 20070103, end: 20070111
  6. GENTALLINE [Suspect]
     Route: 042
     Dates: start: 20070103, end: 20070104

REACTIONS (3)
  - BLOOD CREATININE INCREASED [None]
  - OVERDOSE [None]
  - RENAL FAILURE ACUTE [None]
